FAERS Safety Report 4877246-1 (Version None)
Quarter: 2006Q1

REPORT INFORMATION
  Report Type: 
  Country: None (occurrence: None)
  Receive Date: 20060109
  Receipt Date: 20060109
  Transmission Date: 20060701
  Serious: No
  Sender: FDA-Public Use
  Company Number: None

PATIENT
  Sex: Male
  Weight: 74.8435 kg

DRUGS (1)
  1. ZITHROMAX [Suspect]
     Indication: PHARYNGOLARYNGEAL PAIN
     Dosage: 2 G ONCE
     Dates: start: 20051021

REACTIONS (8)
  - CHEILITIS [None]
  - DIARRHOEA [None]
  - EPISTAXIS [None]
  - GINGIVAL PAIN [None]
  - GINGIVITIS [None]
  - NASAL DISCOMFORT [None]
  - PENILE ULCERATION [None]
  - PENIS DISORDER [None]
